FAERS Safety Report 6763036-1 (Version None)
Quarter: 2010Q2

REPORT INFORMATION
  Report Type: 
  Country: None (occurrence: None)
  Receive Date: 20100609
  Receipt Date: 20100528
  Transmission Date: 20101027
  Serious: Yes (Hospitalization)
  Sender: FDA-Public Use
  Company Number: JP-SANOFI-AVENTIS-2010SA030785

PATIENT
  Age: 68 Year
  Sex: Male

DRUGS (6)
  1. ELPLAT [Suspect]
     Indication: LARGE INTESTINE CARCINOMA
     Route: 041
  2. ELPLAT [Suspect]
     Route: 041
     Dates: start: 20100427, end: 20100427
  3. BEVACIZUMAB [Suspect]
     Indication: LARGE INTESTINE CARCINOMA
     Route: 041
  4. BEVACIZUMAB [Suspect]
     Route: 041
     Dates: start: 20100427, end: 20100427
  5. FLUOROURACIL [Concomitant]
     Indication: LARGE INTESTINE CARCINOMA
     Route: 042
  6. FLUOROURACIL [Concomitant]
     Route: 042
     Dates: start: 20100427, end: 20100427

REACTIONS (4)
  - FACE OEDEMA [None]
  - GLOSSOPHARYNGEAL NERVE PARALYSIS [None]
  - LARYNGEAL OEDEMA [None]
  - PHOTOSENSITIVITY REACTION [None]
